FAERS Safety Report 6171850-9 (Version None)
Quarter: 2009Q2

REPORT INFORMATION
  Report Type: 
  Country: None (occurrence: None)
  Receive Date: 20090429
  Receipt Date: 20090420
  Transmission Date: 20091009
  Serious: Yes (Hospitalization, Other)
  Sender: FDA-Public Use
  Company Number: US-JNJFOC-20081203588

PATIENT
  Sex: Male
  Weight: 103.42 kg

DRUGS (1)
  1. REMICADE [Suspect]
     Indication: CROHN'S DISEASE
     Route: 042

REACTIONS (5)
  - BLOOD PRESSURE DECREASED [None]
  - FAECAL INCONTINENCE [None]
  - HOSPITALISATION [None]
  - HYPERSENSITIVITY [None]
  - URINARY INCONTINENCE [None]
